FAERS Safety Report 14687247 (Version 3)
Quarter: 2018Q2

REPORT INFORMATION
  Report Type: Spontaneous
  Country: NL (occurrence: NL)
  Receive Date: 20180328
  Receipt Date: 20180607
  Transmission Date: 20180711
  Serious: Yes (Hospitalization, Other)
  Sender: FDA-Public Use
  Company Number: NL-ORION CORPORATION ORION PHARMA-ENTC2018-0111

PATIENT
  Sex: Male
  Weight: 90 kg

DRUGS (6)
  1. LEVODOPA RETARD [Concomitant]
     Route: 065
  2. STALEVO [Suspect]
     Active Substance: CARBIDOPA\ENTACAPONE\LEVODOPA
     Indication: PARKINSONISM
     Dosage: STRENGTH: 120 MG
     Route: 065
     Dates: start: 20151010
  3. LEVODOPA [Concomitant]
     Active Substance: LEVODOPA
     Route: 065
  4. STALEVO [Suspect]
     Active Substance: CARBIDOPA\ENTACAPONE\LEVODOPA
     Dosage: STRENGTH: 50 MG
     Route: 065
  5. LEVODOPA [Concomitant]
     Active Substance: LEVODOPA
     Route: 065
  6. NEUPRO [Concomitant]
     Active Substance: ROTIGOTINE
     Route: 065

REACTIONS (12)
  - Gait disturbance [Not Recovered/Not Resolved]
  - Urine output increased [Not Recovered/Not Resolved]
  - Coordination abnormal [Not Recovered/Not Resolved]
  - Spinal disorder [Not Recovered/Not Resolved]
  - Dysstasia [Unknown]
  - Loss of personal independence in daily activities [Not Recovered/Not Resolved]
  - Pain [Unknown]
  - Musculoskeletal stiffness [Unknown]
  - Micturition urgency [Unknown]
  - Muscle spasms [Not Recovered/Not Resolved]
  - Paralysis [Not Recovered/Not Resolved]
  - Muscular weakness [Unknown]

NARRATIVE: CASE EVENT DATE: 20160501
